FAERS Safety Report 9718898 (Version 1)
Quarter: 2013Q4

REPORT INFORMATION
  Report Type: Spontaneous
  Country: JP (occurrence: None)
  Receive Date: 20131126
  Receipt Date: 20131126
  Transmission Date: 20140711
  Serious: Yes (Other)
  Sender: FDA-Public Use
  Company Number: 2013HINLIT0245

PATIENT
  Age: 60 Year
  Sex: 0

DRUGS (2)
  1. LOPINAVIR + RITONAVIR [Suspect]
     Indication: ANTIRETROVIRAL THERAPY
     Dosage: 500 MG, BID, UNKNOWN
     Dates: start: 20110912
  2. ABACAVIR [Suspect]
     Indication: ANTIRETROVIRAL THERAPY
     Dosage: 300 MG, BID, UNKNOWN
     Dates: start: 20010921

REACTIONS (7)
  - Bradyarrhythmia [None]
  - Dizziness [None]
  - Malaise [None]
  - Sinus arrest [None]
  - Toxicity to various agents [None]
  - Atrioventricular block complete [None]
  - Atrioventricular block second degree [None]
